FAERS Safety Report 23851265 (Version 3)
Quarter: 2024Q3

REPORT INFORMATION
  Report Type: Spontaneous
  Country: US (occurrence: US)
  Receive Date: 20240514
  Receipt Date: 20240705
  Transmission Date: 20241017
  Serious: Yes (Other)
  Sender: BRISTOL MYERS SQUIBB
  Company Number: US-BRISTOL-MYERS SQUIBB COMPANY-2024-073896

PATIENT
  Age: 85 Year
  Sex: Female
  Weight: 67.13 kg

DRUGS (1)
  1. POMALYST [Suspect]
     Active Substance: POMALIDOMIDE
     Indication: Plasma cell myeloma
     Dosage: 3 WKS ON, 1 WK OFF, DAILY
     Route: 048
     Dates: start: 20231001

REACTIONS (4)
  - Neuropathy peripheral [Recovering/Resolving]
  - Asthenia [Unknown]
  - Ageusia [Unknown]
  - Anosmia [Unknown]
